FAERS Safety Report 9579487 (Version 2)
Quarter: 2013Q4

REPORT INFORMATION
  Report Type: Spontaneous
  Country: US (occurrence: US)
  Receive Date: 20131001
  Receipt Date: 20131001
  Transmission Date: 20140711
  Serious: No
  Sender: FDA-Public Use
  Company Number: US-AMGEN-USASP2013011576

PATIENT
  Age: 64 Year
  Sex: Female
  Weight: 79.37 kg

DRUGS (12)
  1. ENBREL [Suspect]
     Indication: PSORIATIC ARTHROPATHY
     Dosage: 50 MG, QWK
     Route: 058
  2. XANAX [Concomitant]
     Dosage: 0.25 MG, UNK
     Route: 048
  3. BABY ASPIRIN [Concomitant]
     Dosage: 81 MG, CHW
     Route: 048
  4. VITAMIN B 12 [Concomitant]
     Dosage: 100 MUG, LOZ
     Route: 048
  5. FOLIC ACID [Concomitant]
     Dosage: UNK
     Route: 048
  6. PREVACID [Concomitant]
     Dosage: GRA 15 MG, UNK
     Route: 048
  7. MTX                                /00113801/ [Concomitant]
     Dosage: 2.5 MG, UNK
     Route: 048
  8. OMEGA 3 6 9 [Concomitant]
     Dosage: UNK
     Route: 048
  9. PAXIL                              /00500401/ [Concomitant]
     Dosage: 10 MG, UNK
     Route: 048
  10. VERAPAMIL [Concomitant]
     Dosage: 100 MG, ER
     Route: 048
  11. VITAMIN D                          /00107901/ [Concomitant]
     Dosage: 50000 UNIT, UNK
     Route: 048
  12. PREDNISONE [Concomitant]
     Dosage: 10 MG, UNK
     Route: 048

REACTIONS (1)
  - Upper respiratory tract infection [Recovered/Resolved]
